FAERS Safety Report 26080572 (Version 1)
Quarter: 2025Q4

REPORT INFORMATION
  Report Type: Report from Study
  Country: US (occurrence: US)
  Receive Date: 20251124
  Receipt Date: 20251124
  Transmission Date: 20260117
  Serious: Yes (Other)
  Sender: EMD SERONO INC
  Company Number: US-Merck Healthcare KGaA-2025059517

PATIENT
  Age: 74 Year
  Sex: Male

DRUGS (1)
  1. REBIF [Suspect]
     Active Substance: INTERFERON BETA-1A
     Indication: Multiple sclerosis
     Dosage: 44MCG SUBCUTANEOUSLY 3 TIMES A WEEK
     Dates: start: 2021

REACTIONS (1)
  - Brain neoplasm benign [Unknown]
